FAERS Safety Report 15239802 (Version 2)
Quarter: 2020Q3

REPORT INFORMATION
  Report Type: Spontaneous
  Country: GB (occurrence: GB)
  Receive Date: 20180803
  Receipt Date: 20200722
  Transmission Date: 20201102
  Serious: Yes (Death)
  Sender: FDA-Public Use
  Company Number: GB-MALLINCKRODT-T201803283

PATIENT
  Sex: Male

DRUGS (1)
  1. UVADEX [Suspect]
     Active Substance: METHOXSALEN
     Indication: ACUTE GRAFT VERSUS HOST DISEASE
     Dosage: UNK (EXTRACORPOREAL)
     Route: 050

REACTIONS (3)
  - Post transplant lymphoproliferative disorder [Fatal]
  - Product use in unapproved indication [Unknown]
  - Therapeutic product effect incomplete [Unknown]
